FAERS Safety Report 9015700 (Version 3)
Quarter: 2014Q1

REPORT INFORMATION
  Report Type: Report from Study
  Country: US (occurrence: US)
  Receive Date: 20130116
  Receipt Date: 20140310
  Transmission Date: 20141002
  Serious: Yes (Other)
  Sender: FDA-Public Use
  Company Number: US-ROCHE-1177557

PATIENT
  Age: 32 Year
  Sex: Female
  Weight: 58.61 kg

DRUGS (17)
  1. TRASTUZUMAB [Suspect]
     Indication: BREAST CANCER
     Dosage: LOADING DOSE
     Route: 040
  2. TRASTUZUMAB [Suspect]
     Dosage: MAINTAINENCE DOSE, LAST DOSE PRIOR TO SAE WAS ON 21/DEC/2012
     Route: 042
     Dates: start: 20121108
  3. DOCETAXEL [Suspect]
     Indication: PRODUCT USED FOR UNKNOWN INDICATION
     Dosage: MOST RECENT DOSE ON 21/DEC/2013
     Route: 042
     Dates: start: 20121108
  4. CARBOPLATIN [Suspect]
     Indication: PRODUCT USED FOR UNKNOWN INDICATION
     Dosage: 6 AUC; MOST RECENT DOSE PRIOR TO SAE: 01/FEB/2012
     Route: 042
     Dates: start: 20121108
  5. NEULASTA [Concomitant]
     Route: 065
     Dates: start: 20121202
  6. VENTOLIN HFA [Concomitant]
     Indication: DYSPNOEA
     Route: 065
  7. CLINDAMYCIN PHOSPHATE [Concomitant]
     Route: 065
  8. CODEINE/GUAIFENESIN [Concomitant]
     Indication: COUGH
     Dosage: 10MG TO 100MG/5ML
     Route: 048
  9. DEXAMETHASONE [Concomitant]
     Route: 048
  10. FLOVENT HFA [Concomitant]
     Route: 065
  11. HYDROCHLOROTHIAZIDE [Concomitant]
     Route: 065
  12. LORAZEPAM [Concomitant]
     Indication: NAUSEA
     Route: 065
  13. NAPROXEN [Concomitant]
     Route: 048
  14. ONDANSETRON HCL [Concomitant]
     Indication: NAUSEA
     Route: 048
  15. PROCHLORPERAZINE MALEATE [Concomitant]
     Indication: NAUSEA
     Route: 065
  16. SULFAMETHOXAZOLE/TRIMETHOPRIM [Concomitant]
     Dosage: 800MG/160MG FOR 5 DAYS
     Route: 048
  17. PERTUZUMAB [Suspect]
     Indication: BREAST CANCER
     Dosage: LAST DOSE PRIOR TO SAE 21/DEC/2012
     Route: 042
     Dates: start: 20121108

REACTIONS (1)
  - Epistaxis [Recovered/Resolved]
